FAERS Safety Report 9601233 (Version 2)
Quarter: 2013Q4

REPORT INFORMATION
  Report Type: Spontaneous
  Country: TR (occurrence: TR)
  Receive Date: 20131005
  Receipt Date: 20131125
  Transmission Date: 20140711
  Serious: Yes (Other)
  Sender: FDA-Public Use
  Company Number: TR-ABBVIE-13P-161-1144930-00

PATIENT
  Age: 10 Year
  Sex: Female
  Weight: 25 kg

DRUGS (1)
  1. HUMIRA [Suspect]
     Indication: FAMILIAL MEDITERRANEAN FEVER
     Route: 058

REACTIONS (2)
  - Vasculitic rash [Recovered/Resolved]
  - Henoch-Schonlein purpura [Not Recovered/Not Resolved]
